FAERS Safety Report 5641336-6 (Version None)
Quarter: 2008Q1

REPORT INFORMATION
  Report Type: 
  Country: None (occurrence: None)
  Receive Date: 20080227
  Receipt Date: 20070605
  Transmission Date: 20080703
  Serious: No
  Sender: FDA-Public Use
  Company Number: A0654032A

PATIENT
  Age: 47 Year
  Sex: Female

DRUGS (3)
  1. NICORETTE [Suspect]
  2. NICODERM CQ [Suspect]
  3. PROZAC [Concomitant]

REACTIONS (2)
  - APPLICATION SITE RASH [None]
  - MALAISE [None]
